FAERS Safety Report 17424425 (Version 2)
Quarter: 2020Q1

REPORT INFORMATION
  Report Type: Report from Study
  Country: DE (occurrence: DE)
  Receive Date: 20200217
  Receipt Date: 20200225
  Transmission Date: 20200409
  Serious: Yes (Hospitalization, Other)
  Sender: FDA-Public Use
  Company Number: DE-GILEAD-2020-0451024

PATIENT
  Age: 50 Year
  Sex: Female
  Weight: 89 kg

DRUGS (31)
  1. DEKRISTOL [Concomitant]
     Active Substance: CHOLECALCIFEROL
  2. ADVAGRAF [Concomitant]
     Active Substance: TACROLIMUS
  3. NEXIUM I.V. [Concomitant]
     Active Substance: ESOMEPRAZOLE SODIUM
     Dosage: 20 MG
  4. METRONIDAZOL [METRONIDAZOLE] [Concomitant]
     Active Substance: METRONIDAZOLE
  5. ACTRAPID [Concomitant]
     Active Substance: INSULIN HUMAN
  6. RAMIPRIL. [Concomitant]
     Active Substance: RAMIPRIL
  7. DAKLINZA [Concomitant]
     Active Substance: DACLATASVIR
     Indication: CHRONIC HEPATITIS C
     Dosage: 60 MG, QD
     Route: 048
     Dates: start: 20150211, end: 20150513
  8. HEPA-MERZ [ORNITHINE ASPARTATE] [Concomitant]
  9. AMLODIPIN [AMLODIPINE BESILATE] [Concomitant]
     Active Substance: AMLODIPINE BESYLATE
  10. INSULIN [Concomitant]
     Active Substance: INSULIN NOS
  11. ERYPO FS [Concomitant]
  12. VALSARTAN. [Concomitant]
     Active Substance: VALSARTAN
  13. ALLOPURINOL. [Concomitant]
     Active Substance: ALLOPURINOL
  14. SOFOSBUVIR [Suspect]
     Active Substance: SOFOSBUVIR
     Indication: CHRONIC HEPATITIS C
     Dosage: 400 MG, QD
     Route: 048
     Dates: start: 20150211, end: 20150513
  15. TORASEMID [Concomitant]
     Active Substance: TORSEMIDE
  16. PANTOZOLE [Concomitant]
     Active Substance: PANTOPRAZOLE SODIUM
     Dosage: 20 MG
  17. COPEGUS [Concomitant]
     Active Substance: RIBAVIRIN
     Indication: CHRONIC HEPATITIS C
     Dosage: 600 MG, QD
     Route: 048
     Dates: start: 20150211, end: 20150513
  18. VIGANTOLETTEN [Concomitant]
     Active Substance: CHOLECALCIFEROL
  19. SITAGLIPTIN [Concomitant]
     Active Substance: SITAGLIPTIN
  20. BIFITERAL [Concomitant]
     Active Substance: LACTULOSE
  21. ERYPO [EPOETIN ALFA] [Concomitant]
  22. LACTULOSE. [Concomitant]
     Active Substance: LACTULOSE
  23. LANTUS [Concomitant]
     Active Substance: INSULIN GLARGINE
  24. URSOFALK [Concomitant]
     Active Substance: URSODIOL
  25. METOPROLOL. [Concomitant]
     Active Substance: METOPROLOL
  26. DOXAZOSIN [Concomitant]
     Active Substance: DOXAZOSIN MESYLATE
  27. LASIX [Concomitant]
     Active Substance: FUROSEMIDE
  28. EUTHYROX [Concomitant]
     Active Substance: LEVOTHYROXINE SODIUM
  29. LAMIVUDINE. [Concomitant]
     Active Substance: LAMIVUDINE
  30. FLUVASTATIN [Concomitant]
     Active Substance: FLUVASTATIN SODIUM
  31. RENAGEL [Concomitant]
     Active Substance: SEVELAMER HYDROCHLORIDE

REACTIONS (1)
  - Cholangitis infective [Unknown]

NARRATIVE: CASE EVENT DATE: 20180719
